FAERS Safety Report 13447298 (Version 1)
Quarter: 2017Q2

REPORT INFORMATION
  Report Type: Spontaneous
  Country: US (occurrence: US)
  Receive Date: 20170414
  Receipt Date: 20170414
  Transmission Date: 20170830
  Serious: Yes (Hospitalization, Disabling, Other)
  Sender: FDA-Public Use
  Company Number: None

PATIENT
  Age: 75 Year
  Sex: Female
  Weight: 50.4 kg

DRUGS (1)
  1. BENADRYL [Suspect]
     Active Substance: DIPHENHYDRAMINE HYDROCHLORIDE
     Indication: LOCAL ANAESTHESIA
     Dosage: 3 VIALS DAILY SUBCUTANEOUS
     Route: 058

REACTIONS (6)
  - Injection site necrosis [None]
  - Toe amputation [None]
  - Pain [None]
  - Gangrene [None]
  - Wrong drug administered [None]
  - Impaired healing [None]

NARRATIVE: CASE EVENT DATE: 20170314
